FAERS Safety Report 11358840 (Version 1)
Quarter: 2015Q3

REPORT INFORMATION
  Report Type: Spontaneous
  Country: US (occurrence: None)
  Receive Date: 20150807
  Receipt Date: 20150807
  Transmission Date: 20151125
  Serious: Yes (Life-Threatening, Disabling)
  Sender: FDA-Public Use
  Company Number: None

PATIENT
  Age: 52 Year
  Sex: Male
  Weight: 113.4 kg

DRUGS (5)
  1. OXYCODONE [Concomitant]
     Active Substance: OXYCODONE
  2. REBIF [Concomitant]
     Active Substance: INTERFERON BETA-1A
  3. LYRICA [Concomitant]
     Active Substance: PREGABALIN
  4. VITAMIN D [Concomitant]
     Active Substance: CHOLECALCIFEROL
  5. REBIF [Suspect]
     Active Substance: INTERFERON BETA-1A
     Indication: MULTIPLE SCLEROSIS
     Dosage: 1 SHOT 3 TIMES A WEEK, 3 TIMES A WEEK, GIVEN INTO/UNDER THE SKIN

REACTIONS (2)
  - Muscle atrophy [None]
  - Deep vein thrombosis [None]

NARRATIVE: CASE EVENT DATE: 20150702
